FAERS Safety Report 22782054 (Version 5)
Quarter: 2023Q4

REPORT INFORMATION
  Report Type: Report from Study
  Country: BD (occurrence: BD)
  Receive Date: 20230803
  Receipt Date: 20231227
  Transmission Date: 20240110
  Serious: Yes (Hospitalization, Other)
  Sender: FDA-Public Use
  Company Number: BD-002147023-NVSC2023BD122714

PATIENT
  Age: 55 Year
  Sex: Male
  Weight: 89 kg

DRUGS (3)
  1. ENTRESTO [Suspect]
     Active Substance: SACUBITRIL\VALSARTAN
     Indication: Cardiac failure chronic
     Dosage: 50 MG, BID
     Route: 048
     Dates: start: 2021
  2. ENTRESTO [Suspect]
     Active Substance: SACUBITRIL\VALSARTAN
     Dosage: 100 MG, BID
     Route: 048
     Dates: start: 202304
  3. ENTRESTO [Suspect]
     Active Substance: SACUBITRIL\VALSARTAN
     Dosage: 200 MG, BID
     Route: 048
     Dates: start: 20230518

REACTIONS (24)
  - Pyrexia [Unknown]
  - Loss of consciousness [Recovered/Resolved]
  - Hypoaesthesia [Unknown]
  - Asthenia [Unknown]
  - Hypoaesthesia [Recovered/Resolved]
  - Palpitations [Recovered/Resolved]
  - Vision blurred [Recovered/Resolved]
  - Rhinorrhoea [Recovered/Resolved]
  - Nasopharyngitis [Recovered/Resolved]
  - Sleep disorder [Recovered/Resolved]
  - Brain natriuretic peptide increased [Recovered/Resolved]
  - Dyspnoea [Recovered/Resolved]
  - Cough [Recovered/Resolved]
  - Chest discomfort [Recovered/Resolved]
  - Ejection fraction decreased [Recovered/Resolved]
  - Neck pain [Not Recovered/Not Resolved]
  - Somnolence [Not Recovered/Not Resolved]
  - Brain natriuretic peptide increased [Unknown]
  - Blood creatinine increased [Unknown]
  - Hypotension [Not Recovered/Not Resolved]
  - Vertigo [Not Recovered/Not Resolved]
  - Blood creatinine increased [Recovered/Resolved]
  - Product dose omission issue [Not Recovered/Not Resolved]
  - Dizziness [Not Recovered/Not Resolved]

NARRATIVE: CASE EVENT DATE: 20230501
